FAERS Safety Report 4977794-X (Version None)
Quarter: 2006Q1

REPORT INFORMATION
  Report Type: 
  Country: None (occurrence: None)
  Receive Date: 20060215
  Receipt Date: 20050315
  Transmission Date: 20060701
  Serious: No
  Sender: FDA-Public Use
  Company Number: MC200500275

PATIENT
  Sex: Male
  Weight: 83 kg

DRUGS (1)
  1. ANGIOMAX [Suspect]
     Dosage: SEE IMAGE
     Route: 040
     Dates: start: 20050315, end: 20050315

REACTIONS (2)
  - CATHETER RELATED COMPLICATION [None]
  - COAGULATION TIME ABNORMAL [None]
